FAERS Safety Report 4381482-0 (Version None)
Quarter: 2004Q2

REPORT INFORMATION
  Report Type: 
  Country: None (occurrence: None)
  Receive Date: 20040615
  Receipt Date: 20040608
  Transmission Date: 20050107
  Serious: Yes (Other)
  Sender: FDA-Public Use
  Company Number: US-JNJFOC-20040601811

PATIENT
  Age: 18 Month
  Sex: Female
  Weight: 11.3399 kg

DRUGS (3)
  1. MOTRIN [Suspect]
     Indication: PYREXIA
     Dosage: 74.8 MG, 1 IN 1 TOTAL, ORAL
     Route: 048
     Dates: start: 20040506, end: 20040506
  2. CEFZIL [Suspect]
     Indication: PNEUMONIA
     Dosage: INJECTION
     Dates: start: 20040506
  3. CHILDREN'S TELENOL SUSPENSION PRDOUCT (SUSPENSION) ACETAMINOPHEN [Concomitant]

REACTIONS (15)
  - ABNORMAL BEHAVIOUR [None]
  - CANDIDIASIS [None]
  - DROOLING [None]
  - DRUG INEFFECTIVE [None]
  - DYSPHAGIA [None]
  - HEADACHE [None]
  - HYPERSENSITIVITY [None]
  - INSOMNIA [None]
  - ORAL PAIN [None]
  - PHARYNGOLARYNGEAL PAIN [None]
  - PYREXIA [None]
  - SCREAMING [None]
  - THERMAL BURN [None]
  - THROAT LESION [None]
  - TONGUE ULCERATION [None]
